FAERS Safety Report 8771250 (Version 1)
Quarter: 2012Q4

REPORT INFORMATION
  Report Type: 
  Country: US (occurrence: US)
  Receive Date: 20120906
  Receipt Date: 20120906
  Transmission Date: 20130627
  Serious: No
  Sender: FDA-Public Use
  Company Number: US-BAYER-2012-090697

PATIENT
  Age: 63 Year
  Sex: Female

DRUGS (1)
  1. ULTRAVIST [Suspect]
     Indication: COMPUTERISED TOMOGRAM HEAD
     Dosage: 100 ml, ONCE
     Route: 042
     Dates: start: 20120828, end: 20120828

REACTIONS (2)
  - Urticaria [None]
  - Pruritus [None]
